FAERS Safety Report 12622262 (Version 1)
Quarter: 2016Q3

REPORT INFORMATION
  Report Type: Spontaneous
  Country: RU (occurrence: RU)
  Receive Date: 20160804
  Receipt Date: 20160804
  Transmission Date: 20161109
  Serious: Yes (Death, Other)
  Sender: FDA-Public Use
  Company Number: RU-PFIZER INC-2016355534

PATIENT
  Age: 60 Year
  Sex: Male

DRUGS (4)
  1. DETRALEX [Concomitant]
     Active Substance: DIOSMIN\HESPERIDIN
     Dosage: UNK
  2. BOSULIF [Suspect]
     Active Substance: BOSUTINIB MONOHYDRATE
     Indication: CHRONIC MYELOID LEUKAEMIA
     Dosage: 500 MG, 1X/DAY
     Dates: start: 201606, end: 201607
  3. BOSULIF [Suspect]
     Active Substance: BOSUTINIB MONOHYDRATE
     Dosage: 400 MG, 1X/DAY
     Dates: start: 201607
  4. ACTOVEGIN [Concomitant]
     Active Substance: UNSPECIFIED INGREDIENT
     Dosage: UNK

REACTIONS (7)
  - Diarrhoea [Recovered/Resolved]
  - Vomiting [Recovered/Resolved]
  - Acute kidney injury [Recovered/Resolved]
  - Pulmonary oedema [Fatal]
  - Disease progression [Fatal]
  - Chronic myeloid leukaemia [Fatal]
  - Cardiovascular insufficiency [Fatal]

NARRATIVE: CASE EVENT DATE: 201606
